FAERS Safety Report 7994082-8 (Version None)
Quarter: 2011Q4

REPORT INFORMATION
  Report Type: 
  Country: None (occurrence: None)
  Receive Date: 20111220
  Receipt Date: 20111208
  Transmission Date: 20120403
  Serious: Yes (Hospitalization, Other)
  Sender: FDA-Public Use
  Company Number: US-BAYER-2011-040553

PATIENT
  Age: 24 Year
  Sex: Female
  Weight: 91 kg

DRUGS (10)
  1. ALPRAZOLAM [Concomitant]
     Dosage: 0.25 MG, EVERY 4-6 HOURS AS NEEDED
     Route: 048
  2. LEXAPRO [Concomitant]
     Dosage: 10 MG, DAILY
     Route: 048
  3. PHENERGAN [Concomitant]
     Dosage: 25 MG, EVERY 6 HOURS AS NEEDED
     Route: 054
  4. LORTAB [Concomitant]
     Dosage: 10/500 MG, Q4HR
     Route: 048
  5. YAZ [Suspect]
     Indication: CONTRACEPTION
     Dosage: UNK
     Route: 048
     Dates: start: 20071101, end: 20081001
  6. MULTI-VITAMINS [Concomitant]
     Dosage: 1 DAILY
     Route: 048
  7. YAZ [Suspect]
     Indication: ACNE
  8. PROTONIX [Concomitant]
     Dosage: 40 MG, DAILY
     Route: 048
  9. TOPAMAX [Concomitant]
     Dosage: 50 MG, BID
     Route: 048
  10. INDERAL [Concomitant]
     Dosage: 40 MG, DAILY
     Route: 048

REACTIONS (8)
  - CHOLELITHIASIS [None]
  - PAIN [None]
  - ANXIETY [None]
  - EMOTIONAL DISTRESS [None]
  - CHOLECYSTITIS ACUTE [None]
  - DISCOMFORT [None]
  - ABDOMINAL PAIN [None]
  - GENERAL PHYSICAL HEALTH DETERIORATION [None]
